FAERS Safety Report 6454070-X (Version None)
Quarter: 2009Q4

REPORT INFORMATION
  Report Type: 
  Country: None (occurrence: None)
  Receive Date: 20091124
  Receipt Date: 20091117
  Transmission Date: 20100525
  Serious: Yes (Hospitalization)
  Sender: FDA-Public Use
  Company Number: B0605027A

PATIENT
  Sex: Female

DRUGS (5)
  1. AUGMENTIN [Suspect]
     Indication: ERYSIPELAS
     Dosage: 1G THREE TIMES PER DAY
     Route: 048
     Dates: start: 20091008, end: 20091030
  2. PREVISCAN [Suspect]
     Dosage: 15MG PER DAY
     Route: 048
     Dates: end: 20091028
  3. TRIFLUCAN [Suspect]
     Indication: ERYSIPELAS
     Dosage: 50MG PER DAY
     Route: 048
     Dates: start: 20091008, end: 20091030
  4. PARACETAMOL [Suspect]
     Indication: ERYSIPELAS
     Route: 048
     Dates: start: 20091008, end: 20091028
  5. AUGMENTIN '125' [Concomitant]
     Indication: ERYSIPELAS
     Route: 042
     Dates: start: 20091001, end: 20091001

REACTIONS (4)
  - ANAEMIA [None]
  - DRUG INTERACTION [None]
  - HAEMATOMA [None]
  - INTERNATIONAL NORMALISED RATIO INCREASED [None]
